FAERS Safety Report 7180300-5 (Version None)
Quarter: 2010Q4

REPORT INFORMATION
  Report Type: 
  Country: None (occurrence: None)
  Receive Date: 20101209
  Receipt Date: 20101123
  Transmission Date: 20110411
  Serious: Yes (Other)
  Sender: FDA-Public Use
  Company Number: 2010AP002206

PATIENT
  Age: 52 Year
  Sex: Female
  Weight: 63.5 kg

DRUGS (2)
  1. LISINOPRIL [Suspect]
     Indication: HYPERTENSION
     Dosage: 1 TAB, QD, PO
     Route: 048
  2. LISINOPRIL [Suspect]
     Indication: HYPERTENSION
     Dosage: 5 MG, QD, PO
     Route: 048
     Dates: start: 20091101, end: 20100501

REACTIONS (10)
  - ALOPECIA [None]
  - CRYING [None]
  - GENERALISED OEDEMA [None]
  - INSOMNIA [None]
  - MUSCLE SPASMS [None]
  - PALPITATIONS [None]
  - RESTLESS LEGS SYNDROME [None]
  - SELF ESTEEM DECREASED [None]
  - STEVENS-JOHNSON SYNDROME [None]
  - WEIGHT INCREASED [None]
